FAERS Safety Report 23175305 (Version 1)
Quarter: 2023Q4

REPORT INFORMATION
  Report Type: Other
  Country: US (occurrence: None)
  Receive Date: 20231113
  Receipt Date: 20231113
  Transmission Date: 20240109
  Serious: No
  Sender: FDA-Public Use
  Company Number: US-ROCHE-3455420

PATIENT
  Age: 66 Year
  Sex: Female

DRUGS (2)
  1. OCREVUS [Suspect]
     Active Substance: OCRELIZUMAB
     Indication: Relapsing multiple sclerosis
     Dosage: 300 MG SINGLE-USE VIAL, DATE OF TREATMENT: 07/NOV/2023, 02/MAY/2023, 03/NOV/2022, 17/APR/2022
     Route: 065
     Dates: start: 20220417
  2. MAYZENT [Concomitant]
     Active Substance: SIPONIMOD

REACTIONS (1)
  - COVID-19 [Unknown]
